FAERS Safety Report 10716742 (Version 4)
Quarter: 2015Q1

REPORT INFORMATION
  Report Type: Spontaneous
  Country: IS (occurrence: IS)
  Receive Date: 20150116
  Receipt Date: 20150128
  Transmission Date: 20150721
  Serious: Yes (Hospitalization, Other)
  Sender: FDA-Public Use
  Company Number: IS-ACTAVIS-2015-00198

PATIENT
  Age: 56 Year
  Sex: Male

DRUGS (4)
  1. ENALAPRIL (UNKNOWN) [Interacting]
     Active Substance: ENALAPRIL
     Indication: HYPERTENSION
     Dosage: 20 MG, QAM
     Route: 065
  2. SIMVASTATIN. [Concomitant]
     Active Substance: SIMVASTATIN
     Indication: HYPERLIPIDAEMIA
     Dosage: 40 MG, QPM
     Route: 065
  3. ZOPICLON [Concomitant]
     Active Substance: ZOPICLONE
     Indication: INSOMNIA
     Dosage: 7.5 MG, QPM
     Route: 065
  4. IBUPROFEN (UNKNOWN) [Suspect]
     Active Substance: IBUPROFEN
     Indication: INTENTIONAL PRODUCT MISUSE
     Dosage: 400 MG, TID
     Route: 065

REACTIONS (3)
  - Renal failure [Recovered/Resolved]
  - Intentional product misuse [Unknown]
  - Drug interaction [Unknown]
